FAERS Safety Report 23584421 (Version 1)
Quarter: 2024Q1

REPORT INFORMATION
  Report Type: Spontaneous
  Country: JP (occurrence: JP)
  Receive Date: 20240301
  Receipt Date: 20240301
  Transmission Date: 20240410
  Serious: Yes (Life-Threatening, Other)
  Sender: FDA-Public Use
  Company Number: JP-TAKEDA-2023TJP007651

PATIENT
  Age: 81 Year
  Sex: Female

DRUGS (9)
  1. AGRYLIN [Suspect]
     Active Substance: ANAGRELIDE HYDROCHLORIDE
     Indication: Essential thrombocythaemia
     Dosage: 0.5 MILLIGRAM, QD
     Route: 048
     Dates: start: 20210730, end: 20210816
  2. AGRYLIN [Suspect]
     Active Substance: ANAGRELIDE HYDROCHLORIDE
     Dosage: 1.0 MILLIGRAM, BID
     Route: 048
     Dates: start: 20210817, end: 20210906
  3. AGRYLIN [Suspect]
     Active Substance: ANAGRELIDE HYDROCHLORIDE
     Dosage: 1.5 MILLIGRAM, BID
     Route: 048
     Dates: start: 20210907, end: 20211108
  4. AGRYLIN [Suspect]
     Active Substance: ANAGRELIDE HYDROCHLORIDE
     Dosage: 2.0 MILLIGRAM, BID
     Route: 048
     Dates: start: 20211109, end: 20220119
  5. AMLODIPINE [Concomitant]
     Active Substance: AMLODIPINE BESYLATE
     Indication: Hypertension
     Dosage: 10 MILLIGRAM, QD
     Route: 048
  6. ASPIRIN [Concomitant]
     Active Substance: ASPIRIN
     Indication: Essential thrombocythaemia
     Dosage: 100 MILLIGRAM, QD
     Route: 048
     Dates: start: 201408
  7. FUROSEMIDE [Concomitant]
     Active Substance: FUROSEMIDE
     Indication: Oedema
     Dosage: 20 MILLIGRAM, QD
     Route: 048
     Dates: start: 20210927, end: 20211017
  8. FUROSEMIDE [Concomitant]
     Active Substance: FUROSEMIDE
     Dosage: 40 MILLIGRAM, QD
     Route: 048
     Dates: start: 20211019
  9. CYTARABINE OCFOSFATE [Concomitant]
     Active Substance: CYTARABINE OCFOSFATE
     Indication: Essential thrombocythaemia
     Dosage: 200 MILLIGRAM, QD
     Route: 048
     Dates: start: 20211207, end: 20221211

REACTIONS (4)
  - Cardiac tamponade [Recovered/Resolved]
  - Oedema peripheral [Recovered/Resolved]
  - Underdose [Recovered/Resolved]
  - Therapeutic product effect incomplete [Unknown]

NARRATIVE: CASE EVENT DATE: 20210730
